FAERS Safety Report 19626262 (Version 1)
Quarter: 2021Q3

REPORT INFORMATION
  Report Type: Report from Study
  Country: ES (occurrence: ES)
  Receive Date: 20210729
  Receipt Date: 20210729
  Transmission Date: 20211014
  Serious: Yes (Hospitalization)
  Sender: FDA-Public Use
  Company Number: ES-PFIZER INC-202100917241

PATIENT
  Age: 2 Year
  Sex: Female

DRUGS (6)
  1. CEFEPIME [Suspect]
     Active Substance: CEFEPIME HYDROCHLORIDE
     Indication: BACTERAEMIA
     Dosage: UNK
  2. PIPERACILLIN/TAZOBACTAM [Suspect]
     Active Substance: PIPERACILLIN SODIUM\TAZOBACTAM SODIUM
     Indication: PSEUDOMONAS INFECTION
     Dosage: UNK
  3. CEFIDEROCOL. [Suspect]
     Active Substance: CEFIDEROCOL
     Indication: PSEUDOMONAS INFECTION
     Dosage: 60 MG/KG, EVERY 8 HOURS
  4. COLISTIN [Suspect]
     Active Substance: COLISTIN
     Indication: PSEUDOMONAS INFECTION
     Dosage: UNK (HIGH DOSE)
  5. TEICOPLANIN [Suspect]
     Active Substance: TEICOPLANIN
     Indication: BACTERAEMIA
     Dosage: UNK
  6. MEROPENEM. [Suspect]
     Active Substance: MEROPENEM
     Indication: PSEUDOMONAS INFECTION
     Dosage: 40 MG/KG, 3X/DAY (Q8H)

REACTIONS (4)
  - Ecthyma [Recovered/Resolved]
  - Rash erythematous [Recovered/Resolved]
  - Skin plaque [Recovered/Resolved]
  - Drug ineffective [Recovered/Resolved]
